FAERS Safety Report 23500751 (Version 2)
Quarter: 2024Q1

REPORT INFORMATION
  Report Type: Spontaneous
  Country: CA (occurrence: CA)
  Receive Date: 20240208
  Receipt Date: 20240319
  Transmission Date: 20240410
  Serious: Yes (Other)
  Sender: FDA-Public Use
  Company Number: CA-PFIZER INC-PV202300013445

PATIENT
  Age: 59 Year
  Sex: Male

DRUGS (2)
  1. INLYTA [Suspect]
     Active Substance: AXITINIB
     Indication: Metastatic renal cell carcinoma
     Dosage: 5 MG BID
     Route: 048
     Dates: start: 20221003, end: 20230110
  2. INLYTA [Suspect]
     Active Substance: AXITINIB
     Dosage: 5 MG BID
     Route: 048

REACTIONS (2)
  - Second primary malignancy [Unknown]
  - Colon cancer [Unknown]
